FAERS Safety Report 8460488-6 (Version None)
Quarter: 2012Q2

REPORT INFORMATION
  Report Type: 
  Country: None (occurrence: None)
  Receive Date: 20120622
  Receipt Date: 20120612
  Transmission Date: 20120825
  Serious: Yes (Hospitalization, Other)
  Sender: FDA-Public Use
  Company Number: US-ABBOTT-12P-163-0945392-00

PATIENT
  Sex: Female
  Weight: 45.4 kg

DRUGS (7)
  1. ATIVAN [Suspect]
     Indication: ANXIETY
     Dosage: 25MG IN MORNING; 50MG IN EVENING
  2. LYRICA [Suspect]
  3. CIPROFLOXACIN HCL [Suspect]
     Indication: PRODUCT USED FOR UNKNOWN INDICATION
  4. LYRICA [Suspect]
     Indication: PAIN
     Route: 048
     Dates: start: 20120517
  5. ATIVAN [Suspect]
     Dosage: 50MG DAILY IN THE EVENING
  6. UNSPECIFIED MEDICATON [Suspect]
     Indication: CANDIDIASIS
     Dates: start: 20120101
  7. SYNTHROID [Suspect]
     Indication: THYROIDECTOMY
     Dosage: 75 MCG DAILY

REACTIONS (11)
  - VOMITING [None]
  - PAIN [None]
  - EMOTIONAL DISTRESS [None]
  - THYROID FUNCTION TEST ABNORMAL [None]
  - INSOMNIA [None]
  - VERTIGO [None]
  - HERPES ZOSTER [None]
  - NERVOUSNESS [None]
  - CONVERSION DISORDER [None]
  - COLITIS [None]
  - CANDIDIASIS [None]
